FAERS Safety Report 21764252 (Version 1)
Quarter: 2022Q4

REPORT INFORMATION
  Report Type: Spontaneous
  Country: BR (occurrence: BR)
  Receive Date: 20221222
  Receipt Date: 20221222
  Transmission Date: 20230113
  Serious: Yes (Disabling, Other)
  Sender: FDA-Public Use
  Company Number: BR-CELLTRION INC.-2022BR016668

PATIENT

DRUGS (4)
  1. INFLIXIMAB [Suspect]
     Active Substance: INFLIXIMAB
     Indication: Spondylitis
     Dosage: 3 AMPOULES EVERY 60 DAYS
     Route: 042
  2. INFLIXIMAB [Suspect]
     Active Substance: INFLIXIMAB
     Dosage: 3 AMPOULES EVERY 60 DAYS
     Route: 042
     Dates: start: 20221207
  3. DULOXETINE HYDROCHLORIDE [Concomitant]
     Active Substance: DULOXETINE HYDROCHLORIDE
     Indication: Fibromyalgia
     Dosage: 2 PILLS PER DAY (START: 3 YEARS AGO)
     Route: 048
  4. COQUES [Concomitant]
     Indication: Spondylitis
     Dosage: 1 PILL PER DAY (START: 2 YEARS AGO)
     Route: 048

REACTIONS (17)
  - Monoparesis [Unknown]
  - Gait inability [Unknown]
  - Pain of skin [Not Recovered/Not Resolved]
  - Bedridden [Unknown]
  - Impaired work ability [Unknown]
  - Influenza [Unknown]
  - Bronchitis [Unknown]
  - Sinusitis [Unknown]
  - Swelling [Not Recovered/Not Resolved]
  - Swelling [Not Recovered/Not Resolved]
  - Headache [Not Recovered/Not Resolved]
  - Arthralgia [Not Recovered/Not Resolved]
  - Pain [Unknown]
  - Rhinitis [Unknown]
  - Therapy interrupted [Unknown]
  - Intentional dose omission [Unknown]
  - Product substitution issue [Unknown]
